FAERS Safety Report 5154580-1 (Version None)
Quarter: 2006Q4

REPORT INFORMATION
  Report Type: 
  Country: None (occurrence: None)
  Receive Date: 20061114
  Receipt Date: 20061031
  Transmission Date: 20070319
  Serious: Yes (Hospitalization)
  Sender: FDA-Public Use
  Company Number: T200601222

PATIENT
  Age: 42 Year
  Sex: Female

DRUGS (1)
  1. OPTIRAY 240 [Suspect]
     Indication: VENOGRAM
     Dosage: 50 ML, SINGLE, INTRAVENOUS
     Route: 042
     Dates: start: 20061010, end: 20061010

REACTIONS (6)
  - ANAPHYLACTOID REACTION [None]
  - BLOOD PRESSURE DECREASED [None]
  - DYSPNOEA [None]
  - FEELING ABNORMAL [None]
  - MALAISE [None]
  - PULMONARY OEDEMA [None]
